FAERS Safety Report 8621574-0 (Version None)
Quarter: 2012Q3

REPORT INFORMATION
  Report Type: 
  Country: None (occurrence: None)
  Receive Date: 20120820
  Receipt Date: 20120820
  Transmission Date: 20120928
  Serious: No
  Sender: FDA-Public Use
  Company Number: None

PATIENT
  Sex: Male

DRUGS (1)
  1. ALLOPURINOL [Suspect]
     Indication: GOUT
     Dosage: 100MG DAILY PO
     Route: 048
     Dates: start: 20120813, end: 20120814

REACTIONS (1)
  - GENERALISED ERYTHEMA [None]
